FAERS Safety Report 7220722-7 (Version None)
Quarter: 2011Q1

REPORT INFORMATION
  Report Type: 
  Country: None (occurrence: None)
  Receive Date: 20110111
  Receipt Date: 20110104
  Transmission Date: 20110831
  Serious: Yes (Hospitalization)
  Sender: FDA-Public Use
  Company Number: PHHY2010US85669

PATIENT
  Age: 61 Year
  Sex: Male
  Weight: 106.12 kg

DRUGS (5)
  1. METOPROLOL TARTRATE [Suspect]
     Indication: HYPERTENSION
     Dosage: 2X5
     Route: 048
     Dates: start: 20030101, end: 20100101
  2. ACTOS [Concomitant]
  3. ASPIRIN [Concomitant]
  4. INSULIN [Suspect]
     Indication: DIABETES MELLITUS
  5. GLUCOPHAGE [Concomitant]

REACTIONS (3)
  - BLOOD GLUCOSE DECREASED [None]
  - LOSS OF CONSCIOUSNESS [None]
  - EATING DISORDER [None]
